FAERS Safety Report 4303655-5 (Version None)
Quarter: 2004Q1

REPORT INFORMATION
  Report Type: 
  Country: None (occurrence: None)
  Receive Date: 20040224
  Receipt Date: 20040224
  Transmission Date: 20041129
  Serious: Yes (Hospitalization)
  Sender: FDA-Public Use
  Company Number: None

PATIENT
  Age: 20 Year
  Sex: Female
  Weight: 72.5755 kg

DRUGS (5)
  1. ZOLOFT [Suspect]
     Indication: ANXIETY
     Dosage: ONE CAPLET NIGHT ORAL
     Route: 048
     Dates: start: 20040128, end: 20040210
  2. ZOLOFT [Suspect]
     Indication: DEPRESSION
     Dosage: ONE CAPLET NIGHT ORAL
     Route: 048
     Dates: start: 20040128, end: 20040210
  3. LANTUS [Concomitant]
  4. HUMULOG INSULIN [Concomitant]
  5. ORTHO TRI-CYCLEN [Concomitant]

REACTIONS (6)
  - BODY TEMPERATURE INCREASED [None]
  - DIZZINESS [None]
  - FEELING ABNORMAL [None]
  - FEELING HOT AND COLD [None]
  - HEADACHE [None]
  - NAUSEA [None]
